FAERS Safety Report 15966856 (Version 2)
Quarter: 2019Q1

REPORT INFORMATION
  Report Type: Report from Study
  Country: None (occurrence: IL)
  Receive Date: 20190215
  Receipt Date: 20190301
  Transmission Date: 20190418
  Serious: Yes (Life-Threatening, Hospitalization)
  Sender: FDA-Public Use
  Company Number: IL-ABBVIE-19S-082-2666498-00

PATIENT
  Sex: Male

DRUGS (1)
  1. DUODOPA [Suspect]
     Active Substance: CARBIDOPA\LEVODOPA
     Indication: PARKINSON^S DISEASE
     Dosage: CURRENT: MD 10.4ML, CD 3.3ML/HOUR, ED 1.5ML
     Route: 050
     Dates: start: 20180813

REACTIONS (1)
  - Muscle contractions involuntary [Recovering/Resolving]
